FAERS Safety Report 4569338-1 (Version None)
Quarter: 2005Q1

REPORT INFORMATION
  Report Type: 
  Country: None (occurrence: None)
  Receive Date: 20050203
  Receipt Date: 20040427
  Transmission Date: 20050727
  Serious: Yes (Disabling)
  Sender: FDA-Public Use
  Company Number: FR-GLAXOSMITHKLINE-B0331602A

PATIENT
  Sex: Male
  Weight: 45 kg

DRUGS (4)
  1. SERETIDE [Suspect]
     Indication: ASTHMA
     Route: 055
  2. VENTODISK [Suspect]
     Indication: ASTHMA
     Route: 055
  3. ALBUTEROL [Suspect]
     Indication: ASTHMA
     Route: 065
  4. CORTANCYL [Suspect]
     Indication: ASTHMA
     Route: 048

REACTIONS (1)
  - DENTAL CARIES [None]
